FAERS Safety Report 8860222 (Version 1)
Quarter: 2012Q4

REPORT INFORMATION
  Report Type: Report from Study
  Country: JP (occurrence: JP)
  Receive Date: 20121025
  Receipt Date: 20121025
  Transmission Date: 20130627
  Serious: Yes (Other)
  Sender: FDA-Public Use
  Company Number: JP-009507513-1210JPN008177

PATIENT
  Age: 50 Year
  Sex: Female
  Weight: 61 kg

DRUGS (7)
  1. PEGINTRON [Suspect]
     Indication: HEPATITIS C
     Dosage: 1.5 Microgram per kilogram, qw
     Route: 058
     Dates: start: 20120806
  2. REBETOL [Suspect]
     Indication: HEPATITIS C
     Dosage: 800 mg, UNK
     Route: 048
     Dates: start: 20120806, end: 20120911
  3. REBETOL [Suspect]
     Dosage: 400 mg, qd
     Route: 048
     Dates: start: 20120912
  4. TELAVIC [Suspect]
     Indication: HEPATITIS C
     Dosage: 2250 mg, UNK, cumulative dose 4500mg
     Route: 048
     Dates: start: 20120806, end: 20120808
  5. LOXONIN [Concomitant]
     Indication: PROPHYLAXIS
     Dosage: UNK
     Route: 048
     Dates: start: 20120806, end: 20120815
  6. MUCOSTA [Concomitant]
     Indication: PROPHYLAXIS
     Dosage: UNK UNK, prn
     Route: 048
     Dates: start: 20120806, end: 20120815
  7. GASTER [Concomitant]
     Indication: PROPHYLAXIS
     Dosage: 20 mg, UNK
     Route: 048
     Dates: start: 20120808, end: 20120819

REACTIONS (1)
  - Drug eruption [Recovered/Resolved]
